FAERS Safety Report 4498126-X (Version None)
Quarter: 2004Q4

REPORT INFORMATION
  Report Type: 
  Country: None (occurrence: None)
  Receive Date: 20041110
  Receipt Date: 20041104
  Transmission Date: 20050328
  Serious: Yes (Disabling)
  Sender: FDA-Public Use
  Company Number: GB-MERCK-0411GBR00069

PATIENT
  Age: 53 Year
  Sex: Male

DRUGS (2)
  1. PROSCAR [Suspect]
     Route: 048
     Dates: start: 20041028, end: 20041103
  2. ATENOLOL [Concomitant]
     Route: 065

REACTIONS (2)
  - EPIDIDYMITIS [None]
  - TESTICULAR SWELLING [None]
